FAERS Safety Report 5673112-2 (Version None)
Quarter: 2008Q1

REPORT INFORMATION
  Report Type: 
  Country: None (occurrence: None)
  Receive Date: 20080319
  Receipt Date: 20080311
  Transmission Date: 20080703
  Serious: Yes (Other)
  Sender: FDA-Public Use
  Company Number: CA-ASTRAZENECA-2008UW04832

PATIENT
  Age: 79 Year
  Sex: Female

DRUGS (6)
  1. NEXIUM [Suspect]
     Indication: GASTROOESOPHAGEAL REFLUX DISEASE
     Route: 048
  2. SYNTHROID [Concomitant]
  3. ATIVAN [Concomitant]
  4. METFORMIN HCL [Concomitant]
  5. APO-NADOL [Concomitant]
  6. APO-FUROSEMIDE [Concomitant]

REACTIONS (2)
  - BACK PAIN [None]
  - MYOCARDIAL INFARCTION [None]
